FAERS Safety Report 7010439-6 (Version None)
Quarter: 2010Q3

REPORT INFORMATION
  Report Type: 
  Country: None (occurrence: None)
  Receive Date: 20100923
  Receipt Date: 20100920
  Transmission Date: 20110219
  Serious: Yes (Other)
  Sender: FDA-Public Use
  Company Number: US-PFIZER INC-2010119163

PATIENT
  Age: 85 Year
  Sex: Female
  Weight: 68 kg

DRUGS (6)
  1. ARGATROBAN [Suspect]
     Dosage: UNK
     Route: 042
  2. FONDAPARINUX [Concomitant]
  3. ACETYLSALICYLIC ACID [Concomitant]
     Dosage: 81 MG, 1X/DAY
     Route: 048
  4. CLOPIDOGREL BISULFATE [Concomitant]
     Dosage: 75 MG, 1X/DAY
     Route: 048
  5. ROSUVASTATIN CALCIUM [Concomitant]
     Dosage: 10 MG, 1X/DAY
     Route: 048
  6. METOPROLOL SUCCINATE [Concomitant]
     Dosage: 23.75 MG, 1X/DAY
     Route: 048

REACTIONS (2)
  - HAEMORRHAGE [None]
  - LIVER DISORDER [None]
